FAERS Safety Report 14747278 (Version 1)
Quarter: 2018Q2

REPORT INFORMATION
  Report Type: Spontaneous
  Country: BR (occurrence: BR)
  Receive Date: 20180411
  Receipt Date: 20180411
  Transmission Date: 20180711
  Serious: Yes (Hospitalization)
  Sender: FDA-Public Use
  Company Number: BR-ASTRAZENECA-2018SE45137

PATIENT
  Age: 61 Year
  Sex: Male

DRUGS (2)
  1. XIGDUO XR [Suspect]
     Active Substance: DAPAGLIFLOZIN PROPANEDIOL\METFORMIN HYDROCHLORIDE
     Route: 048
     Dates: start: 201705
  2. ASPIRINA PREVENT [Concomitant]
     Active Substance: ASPIRIN
     Dates: start: 201705

REACTIONS (2)
  - Internal haemorrhage [Recovering/Resolving]
  - Single functional kidney [Recovering/Resolving]
